FAERS Safety Report 15716963 (Version 1)
Quarter: 2018Q4

REPORT INFORMATION
  Report Type: Spontaneous
  Country: US (occurrence: US)
  Receive Date: 20181213
  Receipt Date: 20181213
  Transmission Date: 20190205
  Serious: No
  Sender: FDA-Public Use
  Company Number: US-PFIZER INC-2018508792

PATIENT
  Age: 46 Year
  Sex: Male

DRUGS (1)
  1. SOMAVERT [Suspect]
     Active Substance: PEGVISOMANT
     Indication: ACROMEGALY
     Dosage: 20 MG, DAILY
     Route: 058
     Dates: start: 20181004

REACTIONS (4)
  - Peripheral swelling [Recovering/Resolving]
  - Lip disorder [Recovering/Resolving]
  - Fat tissue increased [Unknown]
  - Constipation [Unknown]
